FAERS Safety Report 21773117 (Version 2)
Quarter: 2022Q4

REPORT INFORMATION
  Report Type: Spontaneous
  Country: US (occurrence: US)
  Receive Date: 20221223
  Receipt Date: 20221230
  Transmission Date: 20230113
  Serious: No
  Sender: FDA-Public Use
  Company Number: US-002147023-NVSC2022US294917

PATIENT
  Sex: Male

DRUGS (1)
  1. RECLAST [Suspect]
     Active Substance: ZOLEDRONIC ACID
     Indication: Osteoporosis
     Dosage: 5 MG (INFUSION IN HIS RIGHT HAND)
     Route: 065
     Dates: start: 20221215

REACTIONS (11)
  - Mobility decreased [Unknown]
  - Confusional state [Unknown]
  - Illness [Unknown]
  - Insomnia [Unknown]
  - Muscular weakness [Unknown]
  - Influenza like illness [Unknown]
  - Pain [Unknown]
  - Pain in extremity [Recovering/Resolving]
  - Pain in jaw [Unknown]
  - Headache [Unknown]
  - Abdominal pain upper [Unknown]
